FAERS Safety Report 6671420-X (Version None)
Quarter: 2010Q2

REPORT INFORMATION
  Report Type: 
  Country: None (occurrence: None)
  Receive Date: 20100407
  Receipt Date: 20100401
  Transmission Date: 20101027
  Serious: Yes (Death)
  Sender: FDA-Public Use
  Company Number: US-SANOFI-AVENTIS-2010SA019683

PATIENT
  Sex: Female

DRUGS (1)
  1. AMBIEN [Suspect]
     Route: 048

REACTIONS (1)
  - COMPLETED SUICIDE [None]
